FAERS Safety Report 5819335-0 (Version None)
Quarter: 2008Q3

REPORT INFORMATION
  Report Type: 
  Country: None (occurrence: None)
  Receive Date: 20080723
  Receipt Date: 20080711
  Transmission Date: 20090109
  Serious: Yes (Other)
  Sender: FDA-Public Use
  Company Number: CA-JNJFOC-20050600119

PATIENT
  Age: 18 Year
  Sex: Female

DRUGS (1)
  1. REMICADE [Suspect]
     Indication: ANKYLOSING SPONDYLITIS
     Dosage: FOLLOWED BY ADDITIONAL INFUSIONS AT TWO, SIX, AND THEN EVERY EIGHT WEEKS
     Route: 042

REACTIONS (2)
  - DEMYELINATION [None]
  - DRUG INEFFECTIVE [None]
